FAERS Safety Report 24053398 (Version 2)
Quarter: 2024Q4

REPORT INFORMATION
  Report Type: Report from Study
  Country: GB (occurrence: GB)
  Receive Date: 20240705
  Receipt Date: 20241009
  Transmission Date: 20250115
  Serious: Yes (Hospitalization)
  Sender: SAMSUNG BIOEPIS
  Company Number: GB-SAMSUNG BIOEPIS-SB-2024-13797

PATIENT
  Age: 64 Year
  Sex: Female

DRUGS (1)
  1. ETANERCEPT [Suspect]
     Active Substance: ETANERCEPT
     Indication: Rheumatoid arthritis
     Route: 058

REACTIONS (3)
  - Respiratory disorder [Not Recovered/Not Resolved]
  - Pneumonia [Not Recovered/Not Resolved]
  - Lower respiratory tract infection [Not Recovered/Not Resolved]
